FAERS Safety Report 4758683-2 (Version None)
Quarter: 2005Q3

REPORT INFORMATION
  Report Type: 
  Country: None (occurrence: None)
  Receive Date: 20050826
  Receipt Date: 20050815
  Transmission Date: 20060218
  Serious: Yes (Other)
  Sender: FDA-Public Use
  Company Number: 2005107275

PATIENT
  Age: 15 Year
  Sex: Male
  Weight: 45 kg

DRUGS (2)
  1. ZYVOX [Suspect]
     Indication: CELLULITIS
     Dosage: 600 MG (600 MG, 1 IN 1 D), INTRAVENOUS
     Route: 042
     Dates: start: 20050719, end: 20050719
  2. ZYVOX [Suspect]
     Indication: CELLULITIS
     Dosage: 1200 MG (600 MG, 2 IN 1 D), ORAL
     Route: 048
     Dates: start: 20050720, end: 20050723

REACTIONS (6)
  - ARRHYTHMIA [None]
  - AV DISSOCIATION [None]
  - CARDIOTOXICITY [None]
  - CHEST DISCOMFORT [None]
  - NODAL RHYTHM [None]
  - PALPITATIONS [None]
